FAERS Safety Report 9425467 (Version 1)
Quarter: 2013Q3

REPORT INFORMATION
  Report Type: Spontaneous
  Country: GB (occurrence: GB)
  Receive Date: 20130729
  Receipt Date: 20130729
  Transmission Date: 20140515
  Serious: Yes (Death, Hospitalization, Other)
  Sender: FDA-Public Use
  Company Number: GB-ABBOTT-13P-167-1125300-00

PATIENT
  Age: 52 Year
  Sex: Male
  Weight: 56.9 kg

DRUGS (15)
  1. NORVIR [Suspect]
     Indication: PRODUCT USED FOR UNKNOWN INDICATION
  2. BRENTUXIMAB VEDOTIN [Interacting]
     Indication: HODGKIN^S DISEASE
     Route: 042
     Dates: start: 20130612, end: 20130612
  3. FLUCONAZOLE [Concomitant]
     Indication: PRODUCT USED FOR UNKNOWN INDICATION
  4. CO-TRIMOXAZOLE [Concomitant]
     Indication: PRODUCT USED FOR UNKNOWN INDICATION
  5. ALLOPURINOL [Concomitant]
     Indication: PRODUCT USED FOR UNKNOWN INDICATION
  6. MOVICOL [Concomitant]
     Indication: PRODUCT USED FOR UNKNOWN INDICATION
  7. ETRAVIRINE [Concomitant]
     Indication: PRODUCT USED FOR UNKNOWN INDICATION
  8. LAMIVUDINE [Concomitant]
     Indication: PRODUCT USED FOR UNKNOWN INDICATION
  9. RALTEGRAVIR [Concomitant]
     Indication: PRODUCT USED FOR UNKNOWN INDICATION
  10. DARUNAVIR [Concomitant]
     Indication: PRODUCT USED FOR UNKNOWN INDICATION
  11. ACYCLOVIR [Concomitant]
     Indication: PRODUCT USED FOR UNKNOWN INDICATION
  12. ATORVASTATIN [Concomitant]
     Indication: PRODUCT USED FOR UNKNOWN INDICATION
  13. MARAVIROC [Concomitant]
     Indication: PRODUCT USED FOR UNKNOWN INDICATION
  14. GLICLAZIDE [Concomitant]
     Indication: PRODUCT USED FOR UNKNOWN INDICATION
  15. AZATHIOPRINE [Concomitant]
     Indication: PRODUCT USED FOR UNKNOWN INDICATION

REACTIONS (7)
  - Renal failure acute [Fatal]
  - Drug interaction [Fatal]
  - General physical health deterioration [Fatal]
  - Nephrolithiasis [Fatal]
  - Oedema [Fatal]
  - Pancreatitis [Fatal]
  - Sepsis [Fatal]
